FAERS Safety Report 16251800 (Version 9)
Quarter: 2020Q2

REPORT INFORMATION
  Report Type: Report from Study
  Country: None (occurrence: US)
  Receive Date: 20190429
  Receipt Date: 20200528
  Transmission Date: 20200713
  Serious: Yes (Hospitalization, Other)
  Sender: FDA-Public Use
  Company Number: US-ABBVIE-19K-163-2758563-00

PATIENT
  Age: 59 Year
  Sex: Female
  Weight: 88.98 kg

DRUGS (12)
  1. HUMIRA [Suspect]
     Active Substance: ADALIMUMAB
     Dosage: CITRATE FREE
     Route: 058
  2. LORTAB [Concomitant]
     Active Substance: ACETAMINOPHEN\HYDROCODONE BITARTRATE
     Indication: ARTHRALGIA
  3. HUMIRA [Suspect]
     Active Substance: ADALIMUMAB
     Indication: RHEUMATOID ARTHRITIS
     Dosage: CITRATE FREE
     Route: 058
  4. KLONOPIN [Concomitant]
     Active Substance: CLONAZEPAM
     Indication: BIPOLAR DISORDER
  5. AMBIEN [Concomitant]
     Active Substance: ZOLPIDEM TARTRATE
     Indication: SLEEP DISORDER THERAPY
  6. WELLBUTRIN [Concomitant]
     Active Substance: BUPROPION HYDROCHLORIDE
     Indication: BIPOLAR DISORDER
  7. FLEXERIL [Concomitant]
     Active Substance: CYCLOBENZAPRINE HYDROCHLORIDE
     Indication: MUSCLE RELAXANT THERAPY
  8. LEXAPRO [Concomitant]
     Active Substance: ESCITALOPRAM OXALATE
     Indication: BIPOLAR DISORDER
  9. HUMIRA [Suspect]
     Active Substance: ADALIMUMAB
     Indication: RHEUMATOID ARTHRITIS
     Dosage: CITRATE FREE
     Route: 058
     Dates: start: 2015
  10. GEODON [Suspect]
     Active Substance: ZIPRASIDONE HYDROCHLORIDE\ZIPRASIDONE MESYLATE
     Indication: NIGHTMARE
     Route: 048
     Dates: start: 2009, end: 2019
  11. SIMVASTATIN. [Concomitant]
     Active Substance: SIMVASTATIN
     Indication: PRODUCT USED FOR UNKNOWN INDICATION
  12. VISTARIL [Concomitant]
     Active Substance: HYDROXYZINE PAMOATE
     Indication: NIGHTMARE

REACTIONS (30)
  - Fall [Recovered/Resolved]
  - Joint effusion [Unknown]
  - Osteoporosis [Unknown]
  - Mental disorder [Recovered/Resolved]
  - Joint dislocation [Recovered/Resolved]
  - Device breakage [Not Recovered/Not Resolved]
  - Mental disorder [Recovered/Resolved]
  - Fatigue [Unknown]
  - Hyperkeratosis [Unknown]
  - Pain in extremity [Unknown]
  - Onychomycosis [Unknown]
  - Joint range of motion decreased [Unknown]
  - Headache [Recovered/Resolved]
  - Joint dislocation [Unknown]
  - Multiple fractures [Unknown]
  - Tremor [Recovering/Resolving]
  - Device dislocation [Not Recovered/Not Resolved]
  - Osteoarthritis [Unknown]
  - Dyskinesia [Recovered/Resolved]
  - Bipolar disorder [Unknown]
  - Muscle atrophy [Unknown]
  - Joint instability [Not Recovered/Not Resolved]
  - Drug hypersensitivity [Unknown]
  - Hypersensitivity [Unknown]
  - Joint dislocation [Recovered/Resolved]
  - Depression [Unknown]
  - Joint swelling [Unknown]
  - Bone disorder [Unknown]
  - Blood cholesterol increased [Recovering/Resolving]
  - Musculoskeletal pain [Unknown]

NARRATIVE: CASE EVENT DATE: 20171202
